FAERS Safety Report 20606425 (Version 1)
Quarter: 2022Q1

REPORT INFORMATION
  Report Type: Spontaneous
  Country: CN (occurrence: CN)
  Receive Date: 20220317
  Receipt Date: 20220317
  Transmission Date: 20220423
  Serious: Yes (Hospitalization)
  Sender: FDA-Public Use
  Company Number: CN-BAYER-2022A035926

PATIENT
  Age: 77 Year
  Sex: Female

DRUGS (1)
  1. STIVARGA [Suspect]
     Active Substance: REGORAFENIB
     Indication: Colon cancer
     Dosage: 120 MG, QD
     Route: 048
     Dates: start: 20220113

REACTIONS (7)
  - Metastases to lung [None]
  - Platelet count decreased [Recovering/Resolving]
  - Asthenia [None]
  - Decreased appetite [None]
  - Poor quality sleep [None]
  - Cough [None]
  - Off label use [None]

NARRATIVE: CASE EVENT DATE: 20220101
